FAERS Safety Report 7647258-3 (Version None)
Quarter: 2011Q3

REPORT INFORMATION
  Report Type: 
  Country: None (occurrence: None)
  Receive Date: 20110801
  Receipt Date: 20110720
  Transmission Date: 20111222
  Serious: Yes (Other)
  Sender: FDA-Public Use
  Company Number: US-ASTRAZENECA-2008UW25909

PATIENT
  Age: 35 Year
  Sex: Female
  Weight: 61.2 kg

DRUGS (16)
  1. DIAZEPAM [Concomitant]
     Dates: start: 20050209
  2. AMITRIPTYLINE HCL [Concomitant]
     Dates: start: 20030516
  3. SEROQUEL [Suspect]
     Route: 048
     Dates: start: 20051011
  4. IONAMIN [Concomitant]
     Indication: WEIGHT CONTROL
     Dates: start: 19910101
  5. DEXATRIM [Concomitant]
     Indication: WEIGHT CONTROL
     Dates: start: 19900101
  6. ESTRADIOL [Concomitant]
     Dates: start: 20041014
  7. SKELAXIN [Concomitant]
     Dates: start: 20050210
  8. RESTORIL [Concomitant]
     Dates: start: 20050308
  9. CITALOPRAM HYDROBROMIDE [Concomitant]
     Dates: start: 20051011
  10. PREDNISONE [Concomitant]
     Dates: start: 20050128
  11. ALPRAZOLAM [Concomitant]
     Dates: start: 20050328
  12. SEROQUEL [Suspect]
     Indication: POST-TRAUMATIC STRESS DISORDER
     Dosage: 25-100MG
     Route: 048
     Dates: start: 20050328, end: 20060101
  13. ALPRAZOLAM [Concomitant]
     Dates: start: 20050308
  14. BUPAP [Concomitant]
     Dates: start: 20050210
  15. HYDROXYCUT [Concomitant]
     Indication: WEIGHT CONTROL
     Dates: start: 19900101
  16. AMIDRINE [Concomitant]
     Dates: start: 20050308

REACTIONS (6)
  - BLOOD TRIGLYCERIDES INCREASED [None]
  - GASTROINTESTINAL DISORDER [None]
  - TYPE 2 DIABETES MELLITUS [None]
  - HYPERLIPIDAEMIA [None]
  - BLOOD CHOLESTEROL INCREASED [None]
  - SOMNOLENCE [None]
